FAERS Safety Report 5319626-6 (Version None)
Quarter: 2007Q2

REPORT INFORMATION
  Report Type: 
  Country: None (occurrence: None)
  Receive Date: 20070503
  Receipt Date: 20070418
  Transmission Date: 20071010
  Serious: Yes (Other)
  Sender: FDA-Public Use
  Company Number: S07-JPN-01469-01

PATIENT
  Age: 32 Year
  Sex: Female
  Weight: 43 kg

DRUGS (4)
  1. ESCITALOPRAM OXALATE [Suspect]
     Indication: MAJOR DEPRESSION
     Dosage: 10 MG BID PO
     Route: 048
     Dates: start: 20070302, end: 20070320
  2. ESCITALOPRAM OXALATE [Suspect]
     Indication: MAJOR DEPRESSION
     Dosage: 10 MG QD PO
     Route: 048
     Dates: start: 20070215, end: 20070301
  3. EVE (IBUPROFEN) [Concomitant]
  4. SELBEX (TEPRENONE) [Concomitant]

REACTIONS (12)
  - BLOOD CHOLESTEROL INCREASED [None]
  - BLOOD POTASSIUM DECREASED [None]
  - CONDITION AGGRAVATED [None]
  - DECREASED APPETITE [None]
  - DIARRHOEA [None]
  - DYSPEPSIA [None]
  - INADEQUATE DIET [None]
  - INSOMNIA [None]
  - MAJOR DEPRESSION [None]
  - NAUSEA [None]
  - NO THERAPEUTIC RESPONSE [None]
  - PROTEIN TOTAL DECREASED [None]
